FAERS Safety Report 4386311-7 (Version None)
Quarter: 2004Q2

REPORT INFORMATION
  Report Type: 
  Country: None (occurrence: None)
  Receive Date: 20040623
  Receipt Date: 20040610
  Transmission Date: 20050107
  Serious: Yes (Hospitalization, Other)
  Sender: FDA-Public Use
  Company Number: 2004039282

PATIENT
  Age: 61 Year
  Sex: Male

DRUGS (3)
  1. VIAGRA [Suspect]
     Indication: ILL-DEFINED DISORDER
     Dosage: (100 MG), ORAL
     Route: 048
  2. ANTIHYPERTENSIVES (ANTIHYPERTENSIVES) [Concomitant]
  3. ALL OTHER THERAPEUTIC PRODUCTS (ALL OTHER THERAPEUTIC PRODUCTS) [Concomitant]

REACTIONS (4)
  - BRAIN DAMAGE [None]
  - INFECTION [None]
  - MYOCARDIAL INFARCTION [None]
  - PYREXIA [None]
